FAERS Safety Report 9709251 (Version 2)
Quarter: 2014Q1

REPORT INFORMATION
  Report Type: Spontaneous
  Country: US (occurrence: US)
  Receive Date: 20131125
  Receipt Date: 20140131
  Transmission Date: 20141002
  Serious: No
  Sender: FDA-Public Use
  Company Number: US-009507513-1311USA009074

PATIENT
  Age: 29 Year
  Sex: Female
  Weight: 115.19 kg

DRUGS (2)
  1. NEXPLANON [Suspect]
     Indication: CONTRACEPTION
     Dosage: UNK
     Route: 059
     Dates: start: 20130909
  2. LEXAPRO [Concomitant]

REACTIONS (5)
  - Rotator cuff syndrome [Not Recovered/Not Resolved]
  - Device breakage [Recovered/Resolved]
  - Device kink [Recovered/Resolved]
  - Device dislocation [Recovered/Resolved]
  - Device kink [Recovered/Resolved]
